FAERS Safety Report 20871575 (Version 1)
Quarter: 2022Q2

REPORT INFORMATION
  Report Type: Spontaneous
  Country: FR (occurrence: FR)
  Receive Date: 20220525
  Receipt Date: 20220525
  Transmission Date: 20220721
  Serious: Yes (Life-Threatening)
  Sender: FDA-Public Use
  Company Number: None

PATIENT
  Age: 49 Year
  Sex: Female
  Weight: 70 kg

DRUGS (5)
  1. ALPRAZOLAM [Suspect]
     Active Substance: ALPRAZOLAM
     Indication: Intentional overdose
     Dosage: 0.25 MG, UNIT DOSE: 30 DF, DURATION : 1 DAY
     Route: 048
     Dates: start: 20220329, end: 20220329
  2. MORPHINE SULFATE [Suspect]
     Active Substance: MORPHINE SULFATE
     Indication: Intentional overdose
     Dosage: 10 MG, PROLONGED-RELEASE MICROGRANULES IN CAPSULE, UNIT DOSE: 84 DF, DURATION : 1 DAYS
     Route: 048
     Dates: start: 20220329, end: 20220329
  3. TRIMEBUTINE [Concomitant]
     Active Substance: TRIMEBUTINE
     Indication: Intentional overdose
     Dosage: 200 MG, UNIT DOSE: 10 DF, DURATION : 1 DAY
     Route: 048
     Dates: start: 20220329, end: 20220329
  4. OMEPRAZOLE [Concomitant]
     Active Substance: OMEPRAZOLE
     Indication: Intentional overdose
     Dosage: 20 MG, UNIT DOSE: 14 DF, DURATION : 1 DAY
     Route: 048
     Dates: start: 20220329, end: 20220329
  5. ACETAMINOPHEN [Concomitant]
     Active Substance: ACETAMINOPHEN
     Indication: Intentional overdose
     Dosage: 1 G, UNIT DOSE: 8 DF, DURATION : 1 DAY
     Route: 048
     Dates: start: 20220329, end: 20220329

REACTIONS (2)
  - Coma [Recovered/Resolved]
  - Poisoning deliberate [Recovered/Resolved]

NARRATIVE: CASE EVENT DATE: 20220329
